FAERS Safety Report 9008748 (Version 2)
Quarter: 2013Q1

REPORT INFORMATION
  Report Type: Report from Study
  Country: FR (occurrence: FR)
  Receive Date: 20130111
  Receipt Date: 20130129
  Transmission Date: 20140127
  Serious: Yes (Other)
  Sender: FDA-Public Use
  Company Number: FR-JNJFOC-20130104990

PATIENT
  Sex: Female

DRUGS (1)
  1. NICORETTE MINT [Suspect]
     Indication: SMOKING CESSATION THERAPY
     Route: 048
     Dates: start: 2003

REACTIONS (2)
  - Incorrect drug administration duration [Not Recovered/Not Resolved]
  - Nicotine dependence [Not Recovered/Not Resolved]
